FAERS Safety Report 21264902 (Version 1)
Quarter: 2022Q3

REPORT INFORMATION
  Report Type: Spontaneous
  Country: US (occurrence: US)
  Receive Date: 20220829
  Receipt Date: 20220829
  Transmission Date: 20221027
  Serious: No
  Sender: FDA-Public Use
  Company Number: US-BRISTOL-MYERS SQUIBB COMPANY-2022-089911

PATIENT
  Age: 74 Year
  Sex: Female

DRUGS (3)
  1. ELIQUIS [Suspect]
     Active Substance: APIXABAN
     Indication: Heart rate irregular
     Dosage: DOSE : UNAVAILABLE;     FREQ : TWICE DAILY
     Route: 048
  2. DIGOXIN [Suspect]
     Active Substance: DIGOXIN
     Indication: Heart rate irregular
     Route: 065
  3. LOSARTAN [Concomitant]
     Active Substance: LOSARTAN
     Indication: Hypertension

REACTIONS (4)
  - Dizziness [Unknown]
  - Dizziness [Unknown]
  - Abdominal pain upper [Unknown]
  - Hypersensitivity [Unknown]

NARRATIVE: CASE EVENT DATE: 20220730
